FAERS Safety Report 9296633 (Version 17)
Quarter: 2016Q2

REPORT INFORMATION
  Report Type: Report from Study
  Country: CA (occurrence: CA)
  Receive Date: 20130517
  Receipt Date: 20160614
  Transmission Date: 20160815
  Serious: Yes (Other)
  Sender: FDA-Public Use
  Company Number: PHHY2013CA047749

PATIENT
  Age: 86 Year
  Sex: Male

DRUGS (1)
  1. SANDOSTATIN LAR DEPOT [Suspect]
     Active Substance: OCTREOTIDE ACETATE
     Indication: NEUROENDOCRINE TUMOUR
     Dosage: 30 MG, QMO (EVERY 4 WEEKS)
     Route: 030
     Dates: start: 20130412

REACTIONS (27)
  - Hypoaesthesia [Unknown]
  - Cough [Unknown]
  - Pain [Recovered/Resolved]
  - Bradycardia [Recovered/Resolved]
  - Blood pressure systolic increased [Unknown]
  - Underdose [Unknown]
  - Arthralgia [Unknown]
  - Accidental exposure to product [Unknown]
  - Liver disorder [Unknown]
  - Red blood cell count abnormal [Unknown]
  - Headache [Unknown]
  - Urticaria [Unknown]
  - Injection site pain [Recovered/Resolved]
  - Prostatomegaly [Unknown]
  - Joint swelling [Unknown]
  - Syringe issue [Unknown]
  - Needle issue [Unknown]
  - Anxiety [Unknown]
  - Paraesthesia [Unknown]
  - Hepatic steatosis [Unknown]
  - Urinary tract infection [Recovered/Resolved]
  - Pruritus [Unknown]
  - Haematuria [Recovered/Resolved]
  - Diarrhoea [Recovered/Resolved]
  - Nephrolithiasis [Recovered/Resolved]
  - Blood pressure increased [Unknown]
  - Chest pain [Unknown]

NARRATIVE: CASE EVENT DATE: 20130522
